FAERS Safety Report 22377913 (Version 1)
Quarter: 2023Q2

REPORT INFORMATION
  Report Type: Spontaneous
  Country: US (occurrence: US)
  Receive Date: 20230529
  Receipt Date: 20230529
  Transmission Date: 20230721
  Serious: No
  Sender: FDA-Public Use
  Company Number: US-CADILA HEALTHCARE LIMITED-US-ZYDUS-087195

PATIENT

DRUGS (17)
  1. BOSENTAN [Suspect]
     Active Substance: BOSENTAN
     Indication: Pulmonary arterial hypertension
     Dosage: 1 TAB, PO, BID
     Route: 048
     Dates: start: 20200711
  2. AAS PREVENT [Concomitant]
     Indication: Product used for unknown indication
     Dosage: , UNK
     Route: 065
  3. AMIODARONE HYDROCHLORIDE [Concomitant]
     Active Substance: AMIODARONE HYDROCHLORIDE
     Indication: Product used for unknown indication
     Dosage: , UNK
     Route: 065
  4. A MELATONIIN FORTE [Concomitant]
     Indication: Product used for unknown indication
     Dosage: , UNK
     Route: 065
  5. CALCIMATE [CALCIUM CARBONATE] [Concomitant]
     Indication: Product used for unknown indication
     Dosage: , UNK
     Route: 065
  6. CLARIDINE [Concomitant]
     Dosage: , UNK
     Route: 065
  7. CIANOCOBALAMINA [Concomitant]
     Indication: Product used for unknown indication
     Dosage: , UNK
     Route: 065
  8. GALIXIMAB [Concomitant]
     Active Substance: GALIXIMAB
     Indication: Product used for unknown indication
     Dosage: , UNK
     Route: 065
  9. FUROSEMIDE [Concomitant]
     Active Substance: FUROSEMIDE
     Dosage: , UNK
     Route: 065
  10. NERVOCAINE [Concomitant]
     Indication: Product used for unknown indication
     Dosage: , UNK
     Route: 065
  11. POT.CHLOR.AJINOMOT [Concomitant]
     Indication: Product used for unknown indication
     Dosage: , UNK
     Route: 065
  12. RACOL [CHLORAMPHENICOL SODIUM SUCCINATE] [Concomitant]
     Indication: Product used for unknown indication
     Dosage: UNK, UNK
     Route: 065
  13. REVATIO OD [Concomitant]
     Indication: Product used for unknown indication
     Dosage: , UNK
     Route: 065
  14. SPIRONOLACTONE [Concomitant]
     Active Substance: SPIRONOLACTONE
     Indication: Product used for unknown indication
     Dosage: , UNK
     Route: 065
  15. TYLENOL [Concomitant]
     Active Substance: ACETAMINOPHEN
     Indication: Product used for unknown indication
     Dosage: , UNK
     Route: 065
  16. WARFARIN [Concomitant]
     Active Substance: WARFARIN
     Indication: Product used for unknown indication
     Dosage: , UNK
     Route: 065
  17. WARFARIN [Concomitant]
     Active Substance: WARFARIN
     Dosage: , UNK
     Route: 065

REACTIONS (1)
  - Iron deficiency [Unknown]
